FAERS Safety Report 6062468-7 (Version None)
Quarter: 2009Q1

REPORT INFORMATION
  Report Type: 
  Country: None (occurrence: None)
  Receive Date: 20090203
  Receipt Date: 20090126
  Transmission Date: 20090719
  Serious: Yes (Other)
  Sender: FDA-Public Use
  Company Number: NL-JNJFOC-20090103654

PATIENT
  Sex: Female

DRUGS (3)
  1. RISPERDAL [Suspect]
     Indication: DRUG USE FOR UNKNOWN INDICATION
     Route: 065
  2. PARNATE [Suspect]
     Route: 065
  3. PARNATE [Suspect]
     Indication: DRUG USE FOR UNKNOWN INDICATION
     Route: 065

REACTIONS (10)
  - ANOREXIA [None]
  - BREAST MASS [None]
  - BREAST PAIN [None]
  - DEPRESSED MOOD [None]
  - EATING DISORDER [None]
  - GALACTORRHOEA [None]
  - HEADACHE [None]
  - NAUSEA [None]
  - PRURITUS [None]
  - WEIGHT INCREASED [None]
